FAERS Safety Report 14487411 (Version 5)
Quarter: 2018Q3

REPORT INFORMATION
  Report Type: Spontaneous
  Country: US (occurrence: US)
  Receive Date: 20180205
  Receipt Date: 20180806
  Transmission Date: 20181010
  Serious: Yes (Other)
  Sender: FDA-Public Use
  Company Number: PHEH2018US004556

PATIENT
  Sex: Male

DRUGS (2)
  1. AFINITOR [Suspect]
     Active Substance: EVEROLIMUS
     Indication: RENAL CANCER
     Dosage: UNK
     Route: 065
  2. LENVATINIB [Suspect]
     Active Substance: LENVATINIB
     Indication: RENAL CANCER
     Dosage: 18 MG, QD
     Route: 048
     Dates: start: 20180111

REACTIONS (18)
  - Deafness [Not Recovered/Not Resolved]
  - Haematochezia [Not Recovered/Not Resolved]
  - Blood triglycerides increased [Not Recovered/Not Resolved]
  - Amnesia [Not Recovered/Not Resolved]
  - Tri-iodothyronine abnormal [Unknown]
  - Visual impairment [Not Recovered/Not Resolved]
  - Hypercoagulation [Unknown]
  - Myalgia [Unknown]
  - Protein urine present [Unknown]
  - Blood pressure increased [Unknown]
  - Peripheral swelling [Not Recovered/Not Resolved]
  - Fatigue [Not Recovered/Not Resolved]
  - Blindness [Not Recovered/Not Resolved]
  - Arthralgia [Unknown]
  - Thyroxine abnormal [Unknown]
  - Memory impairment [Not Recovered/Not Resolved]
  - Blood urine present [Unknown]
  - Nausea [Not Recovered/Not Resolved]
